FAERS Safety Report 5347363-0 (Version None)
Quarter: 2007Q2

REPORT INFORMATION
  Report Type: 
  Country: None (occurrence: None)
  Receive Date: 20070606
  Receipt Date: 20070528
  Transmission Date: 20071010
  Serious: Yes (Other)
  Sender: FDA-Public Use
  Company Number: ZA-JNJFOC-20070506640

PATIENT
  Age: 65 Year

DRUGS (3)
  1. DURAGESIC-100 [Suspect]
     Route: 062
  2. DURAGESIC-100 [Suspect]
     Dosage: 3X 75 UG/HR PATCHES
     Route: 062
  3. DURAGESIC-100 [Suspect]
     Indication: BONE PAIN
     Route: 062

REACTIONS (5)
  - ASTHENIA [None]
  - BEDRIDDEN [None]
  - DRUG ADMINISTRATION ERROR [None]
  - INCORRECT DOSE ADMINISTERED [None]
  - NAUSEA [None]
